FAERS Safety Report 5953666-9 (Version None)
Quarter: 2008Q4

REPORT INFORMATION
  Report Type: 
  Country: None (occurrence: None)
  Receive Date: 20081114
  Receipt Date: 20081015
  Transmission Date: 20090506
  Serious: Yes (Other)
  Sender: FDA-Public Use
  Company Number: B0546162A

PATIENT
  Age: 56 Year
  Sex: Female

DRUGS (17)
  1. ARIXTRA [Suspect]
     Indication: THROMBOSIS PROPHYLAXIS
     Dosage: 2.5MG PER DAY
     Route: 058
     Dates: start: 20080507, end: 20080513
  2. DURAGESIC-100 [Concomitant]
     Route: 065
  3. LEXOMIL [Concomitant]
     Route: 065
  4. SEROPLEX [Concomitant]
     Route: 065
  5. TRIVASTAL [Concomitant]
     Route: 065
  6. DILTIAZEM CHLORHYDRATE [Concomitant]
     Route: 065
  7. DIFFU-K [Concomitant]
     Route: 065
  8. NEXIUM [Concomitant]
     Route: 065
  9. FOSAMAX [Concomitant]
     Route: 065
  10. CACIT D3 [Concomitant]
     Route: 065
  11. DOMPERIDONE [Concomitant]
     Route: 065
  12. VECTARION [Concomitant]
     Route: 065
  13. BECLOJET [Concomitant]
     Route: 065
  14. ALDALIX [Concomitant]
     Route: 065
  15. TARDYFERON [Concomitant]
     Route: 065
  16. MYSOLINE [Concomitant]
     Route: 065
  17. DOLIPRANE [Concomitant]
     Route: 065

REACTIONS (1)
  - POST PROCEDURAL HAEMORRHAGE [None]
